FAERS Safety Report 4622994-1 (Version None)
Quarter: 2005Q1

REPORT INFORMATION
  Report Type: 
  Country: None (occurrence: None)
  Receive Date: 20050329
  Receipt Date: 20020701
  Transmission Date: 20050727
  Serious: Yes (Hospitalization)
  Sender: FDA-Public Use
  Company Number: 3868

PATIENT
  Age: 57 Year
  Sex: Male

DRUGS (2)
  1. CYTARABINE [Suspect]
     Indication: CHRONIC MYELOID LEUKAEMIA
  2. INTERFERON [Suspect]
     Indication: CHRONIC MYELOID LEUKAEMIA
     Dates: start: 20001009, end: 20001130

REACTIONS (8)
  - ARTHRALGIA [None]
  - BACK PAIN [None]
  - BONE PAIN [None]
  - MALAISE [None]
  - NAUSEA [None]
  - PLEURITIC PAIN [None]
  - PYREXIA [None]
  - VOMITING [None]
